FAERS Safety Report 17486324 (Version 1)
Quarter: 2020Q1

REPORT INFORMATION
  Report Type: Spontaneous
  Country: DE (occurrence: DE)
  Receive Date: 20200303
  Receipt Date: 20200303
  Transmission Date: 20200409
  Serious: Yes (Other)
  Sender: FDA-Public Use
  Company Number: DE-HORMOSAN PHARMA GMBH-2020-01016

PATIENT
  Age: 36 Year
  Sex: Male

DRUGS (2)
  1. SERTRALIN-HORMOSAN  50 MG FILMTABLETTEN [Suspect]
     Active Substance: SERTRALINE HYDROCHLORIDE
     Dosage: UNK (DOSE DECREASED)
     Route: 065
  2. SERTRALIN-HORMOSAN  50 MG FILMTABLETTEN [Suspect]
     Active Substance: SERTRALINE HYDROCHLORIDE
     Indication: STRESS
     Dosage: UNK
     Route: 065

REACTIONS (4)
  - Drug withdrawal syndrome [Recovering/Resolving]
  - Product availability issue [Unknown]
  - Drug dependence [Recovering/Resolving]
  - Insomnia [Unknown]
